FAERS Safety Report 20147650 (Version 1)
Quarter: 2021Q4

REPORT INFORMATION
  Report Type: Spontaneous
  Country: US (occurrence: US)
  Receive Date: 20211203
  Receipt Date: 20211203
  Transmission Date: 20220304
  Serious: No
  Sender: FDA-Public Use
  Company Number: US-SA-SAC20211129001449

PATIENT
  Weight: 70.7 kg

DRUGS (2)
  1. LANTUS [Suspect]
     Active Substance: INSULIN GLARGINE
     Dosage: 10 IU, BID
     Route: 065
  2. RYBELSUS [Concomitant]
     Active Substance: SEMAGLUTIDE
     Dosage: UNK UNK, QD
     Route: 065

REACTIONS (2)
  - Blood glucose abnormal [Unknown]
  - Intentional product misuse [Unknown]
